FAERS Safety Report 4458369-8 (Version None)
Quarter: 2004Q3

REPORT INFORMATION
  Report Type: 
  Country: None (occurrence: None)
  Receive Date: 20040922
  Receipt Date: 20040908
  Transmission Date: 20050211
  Serious: Yes (Hospitalization)
  Sender: FDA-Public Use
  Company Number: FR_040904723

PATIENT
  Age: 60 Year
  Sex: Female

DRUGS (13)
  1. XIGRIS [Suspect]
     Indication: SEPTIC SHOCK
     Dosage: 1.3 MG HOUR
     Dates: start: 20040819, end: 20040822
  2. AUGMENTIN [Concomitant]
  3. VANCO (VACOMYCIN HYDROCHLORIDE) [Concomitant]
  4. GENTAMICIN [Concomitant]
  5. AXEPIM (CEFEPIME HYDROCHLORIDE) [Concomitant]
  6. HYDROCORTISONE [Concomitant]
  7. NORADRENALINE [Concomitant]
  8. SUFENTA [Concomitant]
  9. DIPRIVAN [Concomitant]
  10. ULTIVA [Concomitant]
  11. MOPRAL (OMEPRAZOLE) [Concomitant]
  12. NIMBEX [Concomitant]
  13. INSULIN [Concomitant]

REACTIONS (3)
  - LYMPHANGITIS [None]
  - PHLEBITIS [None]
  - PYREXIA [None]
